FAERS Safety Report 4866320-1 (Version None)
Quarter: 2005Q4

REPORT INFORMATION
  Report Type: 
  Country: None (occurrence: None)
  Receive Date: 20051221
  Receipt Date: 20051209
  Transmission Date: 20060501
  Serious: Yes (Hospitalization, Other)
  Sender: FDA-Public Use
  Company Number: 219495

PATIENT
  Age: 33 Year
  Sex: Female
  Weight: 63.5 kg

DRUGS (3)
  1. RAPTIVA [Suspect]
     Indication: PSORIASIS
     Dosage: 0.4 ML, 1/WEEK, SUBCUTANEOUS
     Route: 058
     Dates: start: 20051112, end: 20051114
  2. IMITREX [Concomitant]
  3. ZOLOFT [Concomitant]

REACTIONS (7)
  - DIZZINESS [None]
  - FATIGUE [None]
  - HEADACHE [None]
  - LEUKOCYTOSIS [None]
  - MENINGITIS ASEPTIC [None]
  - MENINGITIS VIRAL [None]
  - PHOTOPHOBIA [None]
